FAERS Safety Report 6305428-0 (Version None)
Quarter: 2009Q3

REPORT INFORMATION
  Report Type: 
  Country: None (occurrence: None)
  Receive Date: 20090807
  Receipt Date: 20090730
  Transmission Date: 20100115
  Serious: Yes (Hospitalization)
  Sender: FDA-Public Use
  Company Number: OMPQ-NO-0907S-0479

PATIENT
  Age: 63 Year
  Sex: Female

DRUGS (1)
  1. OMNIPAQUE 300 [Suspect]
     Indication: ABDOMINAL PAIN LOWER
     Dosage: 100 ML, SINGLE DOSE, I.V.
     Route: 042
     Dates: start: 20090629, end: 20090629

REACTIONS (3)
  - CONVERSION DISORDER [None]
  - DIPLEGIA [None]
  - NERVOUSNESS [None]
